FAERS Safety Report 5574522-4 (Version None)
Quarter: 2007Q4

REPORT INFORMATION
  Report Type: 
  Country: None (occurrence: None)
  Receive Date: 20071227
  Receipt Date: 20071212
  Transmission Date: 20080405
  Serious: Yes (Life-Threatening, Hospitalization)
  Sender: FDA-Public Use
  Company Number: GR-BAYER-200718517GPV

PATIENT
  Age: 17 Year
  Sex: Female
  Weight: 60 kg

DRUGS (1)
  1. ASPIRIN [Suspect]
     Indication: SUICIDAL IDEATION
     Dosage: AS USED: 12.5 G
     Route: 048

REACTIONS (4)
  - GLYCOSURIA [None]
  - PROTEINURIA [None]
  - RENAL TUBULAR DISORDER [None]
  - URINE URIC ACID ABNORMAL [None]
